FAERS Safety Report 5910993-9 (Version None)
Quarter: 2008Q4

REPORT INFORMATION
  Report Type: 
  Country: None (occurrence: None)
  Receive Date: 20081003
  Receipt Date: 20081003
  Transmission Date: 20090506
  Serious: Yes (Other)
  Sender: FDA-Public Use
  Company Number: None

PATIENT
  Age: 39 Year
  Sex: Male
  Weight: 71.2147 kg

DRUGS (2)
  1. AUGMENTIN '875' [Suspect]
     Indication: BACTERIAL CULTURE POSITIVE
     Dosage: 1 TABLET 2 TIMES PER DAY PO
     Route: 048
     Dates: start: 20080903, end: 20081003
  2. AUGMENTIN '875' [Suspect]
     Indication: STAPHYLOCOCCAL INFECTION
     Dosage: 1 TABLET 2 TIMES PER DAY PO
     Route: 048
     Dates: start: 20080903, end: 20081003

REACTIONS (1)
  - DEPRESSION [None]
